FAERS Safety Report 12076076 (Version 3)
Quarter: 2016Q1

REPORT INFORMATION
  Report Type: Other
  Country: US (occurrence: US)
  Receive Date: 20160215
  Receipt Date: 20160226
  Transmission Date: 20160526
  Serious: Yes (Other)
  Sender: FDA-Public Use
  Company Number: US-GLENMARK PHARMACEUTICALS INC, USA.-2016GMK022005

PATIENT

DRUGS (1)
  1. ZONISAMIDE. [Suspect]
     Active Substance: ZONISAMIDE
     Indication: SEIZURE
     Dosage: 100 MG, TID EVENINGS
     Route: 048
     Dates: start: 201407

REACTIONS (5)
  - Drug ineffective [Unknown]
  - Product substitution issue [Unknown]
  - Product measured potency issue [Unknown]
  - Seizure [Unknown]
  - No therapeutic response [Unknown]
